FAERS Safety Report 14839201 (Version 3)
Quarter: 2018Q3

REPORT INFORMATION
  Report Type: Spontaneous
  Country: DE (occurrence: DE)
  Receive Date: 20180502
  Receipt Date: 20180703
  Transmission Date: 20181010
  Serious: Yes (Other)
  Sender: FDA-Public Use
  Company Number: DE-ALLERGAN-1823790US

PATIENT
  Age: 37 Year
  Sex: Female

DRUGS (7)
  1. PREGABALIN. [Suspect]
     Active Substance: PREGABALIN
     Indication: PRODUCT USED FOR UNKNOWN INDICATION
     Dosage: 100 MG, QPM
     Route: 048
  2. ESCITALOPRAM OXALATE ? BP [Suspect]
     Active Substance: ESCITALOPRAM OXALATE
     Dosage: 15 MG, QD
     Route: 048
  3. ESCITALOPRAM OXALATE ? BP [Suspect]
     Active Substance: ESCITALOPRAM OXALATE
     Dosage: 20 MG, QD
     Route: 048
  4. RISPERIDON [Suspect]
     Active Substance: RISPERIDONE
     Indication: DELIRIUM
     Dosage: UNK, UNKNOWN
     Route: 048
  5. RISPERIDON [Suspect]
     Active Substance: RISPERIDONE
     Indication: NEGATIVE THOUGHTS
     Dosage: UNK
     Route: 048
  6. ARIPIPRAZOLE. [Suspect]
     Active Substance: ARIPIPRAZOLE
     Indication: NEGATIVE THOUGHTS
     Dosage: 5 MG, QD
     Route: 065
  7. ESCITALOPRAM OXALATE ? BP [Suspect]
     Active Substance: ESCITALOPRAM OXALATE
     Indication: PANIC DISORDER
     Dosage: 20 MG, QAM
     Route: 048

REACTIONS (9)
  - Haematoma [Unknown]
  - Menorrhagia [Recovered/Resolved]
  - Insomnia [Unknown]
  - Off label use [Unknown]
  - Delirium [Unknown]
  - Condition aggravated [Recovered/Resolved]
  - Thinking abnormal [Unknown]
  - Respiratory tract infection [Unknown]
  - Drug ineffective [Unknown]
